FAERS Safety Report 6054304-X (Version None)
Quarter: 2009Q1

REPORT INFORMATION
  Report Type: 
  Country: None (occurrence: None)
  Receive Date: 20090127
  Receipt Date: 20090116
  Transmission Date: 20090719
  Serious: Yes (Other)
  Sender: FDA-Public Use
  Company Number: PHHY2009NL01875

PATIENT
  Age: 8 Year
  Sex: Female

DRUGS (1)
  1. RITALIN [Suspect]
     Dosage: 10 MG, UNK
     Route: 048
     Dates: start: 20081101, end: 20090114

REACTIONS (2)
  - ABDOMINAL DISCOMFORT [None]
  - BODY TEMPERATURE DECREASED [None]
